FAERS Safety Report 15968321 (Version 2)
Quarter: 2019Q1

REPORT INFORMATION
  Report Type: Spontaneous
  Country: US (occurrence: US)
  Receive Date: 20190215
  Receipt Date: 20190225
  Transmission Date: 20190418
  Serious: Yes (Hospitalization, Other)
  Sender: FDA-Public Use
  Company Number: US-OTSUKA-2019_004303

PATIENT
  Sex: Male

DRUGS (1)
  1. ABILIFY [Suspect]
     Active Substance: ARIPIPRAZOLE
     Indication: BIPOLAR DISORDER
     Dosage: 5 MG, QD
     Route: 065
     Dates: start: 20070319, end: 20131022

REACTIONS (17)
  - Shoplifting [Not Recovered/Not Resolved]
  - Compulsive shopping [Not Recovered/Not Resolved]
  - Suicidal ideation [Not Recovered/Not Resolved]
  - Theft [Not Recovered/Not Resolved]
  - Homeless [Unknown]
  - Suicide attempt [Not Recovered/Not Resolved]
  - Gambling disorder [Recovered/Resolved]
  - Dermatillomania [Not Recovered/Not Resolved]
  - Eating disorder [Recovered/Resolved]
  - Trichotillomania [Not Recovered/Not Resolved]
  - Loss of employment [Unknown]
  - Mental disorder [Unknown]
  - Sexual dysfunction [Not Recovered/Not Resolved]
  - Obsessive-compulsive disorder [Not Recovered/Not Resolved]
  - Sexually transmitted disease [Unknown]
  - Compulsive sexual behaviour [Recovered/Resolved]
  - Economic problem [Unknown]
